FAERS Safety Report 20255285 (Version 18)
Quarter: 2023Q4

REPORT INFORMATION
  Report Type: Spontaneous
  Country: CA (occurrence: CA)
  Receive Date: 20211230
  Receipt Date: 20231229
  Transmission Date: 20240109
  Serious: Yes (Other)
  Sender: FDA-Public Use
  Company Number: CA-CELLTRION INC.-2021CA017869

PATIENT

DRUGS (22)
  1. INFLECTRA [Suspect]
     Active Substance: INFLIXIMAB-DYYB
     Indication: Crohn^s disease
     Dosage: 400 MG AT 0,2,6 THEN EVERY 8 WEEKS
     Route: 042
     Dates: start: 20210913
  2. INFLECTRA [Suspect]
     Active Substance: INFLIXIMAB-DYYB
     Dosage: 400 MG AT 0,2,6 THEN EVERY 8 WEEKS
     Route: 042
     Dates: start: 20211001
  3. INFLECTRA [Suspect]
     Active Substance: INFLIXIMAB-DYYB
     Dosage: 400 MG AT 0,2,6 THEN EVERY 8 WEEKS
     Route: 042
     Dates: start: 20211026
  4. INFLECTRA [Suspect]
     Active Substance: INFLIXIMAB-DYYB
     Dosage: 400 MG AT 0,2,6 THEN EVERY 8 WEEKS
     Route: 042
     Dates: start: 20211223
  5. INFLECTRA [Suspect]
     Active Substance: INFLIXIMAB-DYYB
     Dosage: 400 MG AT 0,2,6 THEN EVERY 8 WEEKS
     Route: 042
     Dates: start: 20220217
  6. INFLECTRA [Suspect]
     Active Substance: INFLIXIMAB-DYYB
     Dosage: 400 MG AT 0,2,6 THEN EVERY 8 WEEKS
     Route: 042
     Dates: start: 20220414
  7. INFLECTRA [Suspect]
     Active Substance: INFLIXIMAB-DYYB
     Dosage: 400 MG AT 0,2,6 THEN EVERY 8 WEEKS
     Route: 042
     Dates: start: 20220611
  8. INFLECTRA [Suspect]
     Active Substance: INFLIXIMAB-DYYB
     Dosage: 400 MG AT 0,2,6 THEN EVERY 8 WEEKS
     Route: 042
     Dates: start: 20220803
  9. INFLECTRA [Suspect]
     Active Substance: INFLIXIMAB-DYYB
     Dosage: 400 MG AT 0,2,6 THEN EVERY 8 WEEKS
     Route: 042
     Dates: start: 20220928
  10. INFLECTRA [Suspect]
     Active Substance: INFLIXIMAB-DYYB
     Dosage: 400 MG AT 0,2,6 THEN EVERY 8 WEEKS
     Route: 042
     Dates: start: 20221123
  11. INFLECTRA [Suspect]
     Active Substance: INFLIXIMAB-DYYB
     Dosage: 400 MG AT 0,2,6 THEN EVERY 8 WEEKS
     Route: 042
     Dates: start: 20230113
  12. INFLECTRA [Suspect]
     Active Substance: INFLIXIMAB-DYYB
     Dosage: 400 MG,AT 0,2,6 THEN EVERY 8 WEEKS
     Route: 042
     Dates: start: 20230315
  13. INFLECTRA [Suspect]
     Active Substance: INFLIXIMAB-DYYB
     Dosage: 400 MG,AT 0,2,6 THEN EVERY 8 WEEKS
     Route: 042
     Dates: start: 20230510
  14. INFLECTRA [Suspect]
     Active Substance: INFLIXIMAB-DYYB
     Dosage: 400 MG AT 0,2,6 THEN EVERY 8 WEEKS
     Route: 042
     Dates: start: 20230705
  15. INFLECTRA [Suspect]
     Active Substance: INFLIXIMAB-DYYB
     Dosage: 400 MG, EVERY 8 WEEKS
     Route: 042
     Dates: start: 20230901
  16. INFLECTRA [Suspect]
     Active Substance: INFLIXIMAB-DYYB
     Dosage: 400 MG, AT 0,2,6 THEN EVERY 8 WEEKS (DOSAGE ADMINISTERED: 400MG AFTER 7 WEEKS AND 5 DAYS)
     Route: 042
     Dates: start: 20231025
  17. INFLECTRA [Suspect]
     Active Substance: INFLIXIMAB-DYYB
     Dosage: 400 MG, AT 0,2,6 THEN EVERY 8 WEEKS
     Route: 042
     Dates: start: 20231220
  18. AZATHIOPRINE [Concomitant]
     Active Substance: AZATHIOPRINE
     Dosage: UNK
  19. ESTROGENS [Concomitant]
     Active Substance: ESTROGENS
     Dosage: UNK
  20. MAGNESIUM [Concomitant]
     Active Substance: MAGNESIUM
     Dosage: UNK (SUPPLEMENT)
  21. METRONIDAZOLE [Concomitant]
     Active Substance: METRONIDAZOLE
     Dosage: 1 DF, DOSAGE NOT AVAILABLE, STATUS DISCONTINUED
     Route: 065
  22. PROGESTERONE [Concomitant]
     Active Substance: PROGESTERONE
     Dosage: UNK (PILL)

REACTIONS (16)
  - Haemorrhage [Not Recovered/Not Resolved]
  - Malaise [Recovering/Resolving]
  - Fistula discharge [Recovering/Resolving]
  - Stress [Not Recovered/Not Resolved]
  - Poor venous access [Not Recovered/Not Resolved]
  - Sinus congestion [Recovering/Resolving]
  - Fistula [Recovered/Resolved]
  - Frequent bowel movements [Recovering/Resolving]
  - Oropharyngeal pain [Recovering/Resolving]
  - Abscess [Recovered/Resolved]
  - Condition aggravated [Not Recovered/Not Resolved]
  - Fatigue [Not Recovered/Not Resolved]
  - Ear infection bacterial [Recovering/Resolving]
  - Nasopharyngitis [Recovering/Resolving]
  - Therapeutic response decreased [Unknown]
  - Off label use [Unknown]

NARRATIVE: CASE EVENT DATE: 20211030
